FAERS Safety Report 8823036 (Version 1)
Quarter: 2012Q4

REPORT INFORMATION
  Report Type: 
  Country: US (occurrence: US)
  Receive Date: 20121003
  Receipt Date: 20121003
  Transmission Date: 20130627
  Serious: Yes (Hospitalization, Other)
  Sender: FDA-Public Use
  Company Number: US-ASTRAZENECA-2012SE74015

PATIENT
  Age: 67 Year
  Sex: Male

DRUGS (5)
  1. ZESTRIL [Suspect]
     Route: 048
  2. CARBOPLATIN [Suspect]
     Indication: NON-SMALL CELL LUNG CANCER
     Dosage: 3254 MG
     Route: 065
     Dates: start: 20111107
  3. PACLITAXEL [Suspect]
     Indication: NON-SMALL CELL LUNG CANCER
     Dosage: 1500 MG
     Route: 065
     Dates: start: 20111107
  4. NIFEDIPINE [Suspect]
     Route: 065
  5. RADIATION [Suspect]
     Indication: NON-SMALL CELL LUNG CANCER
     Dosage: 60 GY 5X PER WEEK FOR 6 WEEKS
     Route: 065
     Dates: start: 20111107, end: 20111219

REACTIONS (8)
  - Orthostatic hypotension [Recovered/Resolved]
  - Hypomagnesaemia [Recovered/Resolved]
  - Blood potassium decreased [Unknown]
  - Haemoglobin decreased [Unknown]
  - Bladder cancer [Unknown]
  - Myocardial infarction [Unknown]
  - Hypertension [Unknown]
  - Hyperlipidaemia [Unknown]
